FAERS Safety Report 7603661-9 (Version None)
Quarter: 2011Q3

REPORT INFORMATION
  Report Type: 
  Country: None (occurrence: None)
  Receive Date: 20110712
  Receipt Date: 20110706
  Transmission Date: 20111222
  Serious: No
  Sender: FDA-Public Use
  Company Number: US-PFIZER INC-2011119751

PATIENT
  Age: 52 Year
  Sex: Female

DRUGS (2)
  1. PRISTIQ [Suspect]
     Dosage: 100 MG, DAILY
     Route: 048
     Dates: end: 20110101
  2. FENTANYL-100 [Suspect]
     Indication: PAIN
     Dosage: 50 UG, 3X/DAY

REACTIONS (1)
  - DRUG WITHDRAWAL SYNDROME [None]
